FAERS Safety Report 8722165 (Version 3)
Quarter: 2012Q4

REPORT INFORMATION
  Report Type: 
  Country: RO (occurrence: RO)
  Receive Date: 20120814
  Receipt Date: 20120830
  Transmission Date: 20130627
  Serious: Yes (Death)
  Sender: FDA-Public Use
  Company Number: RO-B.I. PHARMACEUTICALS,INC./RIDGEFIELD-2012-AP-00662AP

PATIENT
  Age: 78 Year
  Sex: Female
  Weight: 75 kg

DRUGS (6)
  1. PRADAXA [Suspect]
     Indication: ATRIAL FIBRILLATION
     Dosage: 220 mg
     Route: 048
     Dates: start: 20120722, end: 20120809
  2. DIGOXIN [Concomitant]
     Indication: ATRIAL FIBRILLATION
     Dosage: 0.25 mg
  3. BETALOC [Concomitant]
     Indication: ATRIAL FIBRILLATION
     Dosage: 50 mg
  4. SORTIS [Concomitant]
     Indication: DYSLIPIDAEMIA
     Dosage: 20 mg
  5. BISEPTRIM [Concomitant]
     Indication: URINARY TRACT INFECTION
     Dosage: 2.4g/480mg/day
  6. PIRACETAM [Concomitant]
     Indication: CEREBROVASCULAR ACCIDENT
     Dosage: 1.2 g

REACTIONS (1)
  - Rectal haemorrhage [Fatal]
